APPROVED DRUG PRODUCT: DIDANOSINE
Active Ingredient: DIDANOSINE
Strength: 200MG
Dosage Form/Route: CAPSULE, DELAYED REL PELLETS;ORAL
Application: A090788 | Product #002
Applicant: PHARMOBEDIENT CONSULTING LLC
Approved: Apr 8, 2010 | RLD: No | RS: No | Type: DISCN